FAERS Safety Report 16715289 (Version 1)
Quarter: 2019Q3

REPORT INFORMATION
  Report Type: Spontaneous
  Country: RO (occurrence: RO)
  Receive Date: 20190819
  Receipt Date: 20190819
  Transmission Date: 20191005
  Serious: Yes (Death, Other)
  Sender: FDA-Public Use
  Company Number: RO-TEVA-2019-RO-1092684

PATIENT
  Age: 65 Year
  Sex: Female

DRUGS (2)
  1. VINORELBINE [Suspect]
     Active Substance: VINORELBINE TARTRATE
     Route: 048
     Dates: start: 20130510, end: 20160204
  2. CARBOPLATIN. [Suspect]
     Active Substance: CARBOPLATIN
     Route: 065

REACTIONS (3)
  - Metastases to lung [Unknown]
  - Metastases to liver [Unknown]
  - Therapy partial responder [Unknown]
